FAERS Safety Report 11795835 (Version 1)
Quarter: 2015Q4

REPORT INFORMATION
  Report Type: Spontaneous
  Country: US (occurrence: US)
  Receive Date: 20151203
  Receipt Date: 20151203
  Transmission Date: 20160305
  Serious: No
  Sender: FDA-Public Use
  Company Number: US-ASTRAZENECA-2015SF12651

PATIENT
  Sex: Male

DRUGS (1)
  1. RHINOCORT AQUA [Suspect]
     Active Substance: BUDESONIDE
     Route: 045

REACTIONS (2)
  - Hypersensitivity [Unknown]
  - Sensitivity to weather change [Unknown]
